FAERS Safety Report 8376896-8 (Version None)
Quarter: 2012Q2

REPORT INFORMATION
  Report Type: 
  Country: None (occurrence: None)
  Receive Date: 20120522
  Receipt Date: 20120511
  Transmission Date: 20120825
  Serious: Yes (Hospitalization)
  Sender: FDA-Public Use
  Company Number: FR-FRI-1000030636

PATIENT
  Sex: Female

DRUGS (4)
  1. KEPPRA [Concomitant]
  2. RISPERDAL [Suspect]
     Indication: AGITATION
     Dosage: 2 MG
     Route: 048
     Dates: start: 20120223, end: 20120310
  3. TRANSIPEG [Concomitant]
  4. ESCITALOPRAM [Suspect]
     Indication: DEPRESSION
     Dosage: 10 MG
     Route: 048
     Dates: start: 20120223, end: 20120310

REACTIONS (1)
  - GRAND MAL CONVULSION [None]
